FAERS Safety Report 13839983 (Version 1)
Quarter: 2017Q3

REPORT INFORMATION
  Report Type: Spontaneous
  Country: DK (occurrence: DK)
  Receive Date: 20170807
  Receipt Date: 20170807
  Transmission Date: 20171127
  Serious: Yes (Hospitalization)
  Sender: FDA-Public Use
  Company Number: DK-TEVA-791110ACC

PATIENT
  Age: 26 Year
  Sex: Female
  Weight: 75 kg

DRUGS (5)
  1. PANTOPRAZOL ^ACTAVIS^ [Concomitant]
     Indication: GASTROOESOPHAGEAL REFLUX DISEASE
     Dates: start: 20140101
  2. PLAQUENIL [Concomitant]
     Active Substance: HYDROXYCHLOROQUINE SULFATE
     Indication: SYSTEMIC LUPUS ERYTHEMATOSUS
     Dates: start: 20120815
  3. ALENDRONIC ACID [Suspect]
     Active Substance: ALENDRONIC ACID
     Indication: OSTEOPOROSIS PROPHYLAXIS
     Route: 048
     Dates: start: 20170320, end: 20170328
  4. TETRACYCLIN ^ACTAVIS^ [Concomitant]
     Indication: DERMATITIS
     Dates: start: 20170120, end: 20170513
  5. PREDNISOLON ^DAK^ [Concomitant]
     Active Substance: PREDNISOLONE
     Indication: SYSTEMIC LUPUS ERYTHEMATOSUS
     Dates: start: 20120815

REACTIONS (6)
  - Back pain [Recovering/Resolving]
  - Pain [Unknown]
  - Chest pain [Recovering/Resolving]
  - Neck pain [Recovering/Resolving]
  - Dysstasia [Unknown]
  - Impaired work ability [Unknown]

NARRATIVE: CASE EVENT DATE: 20170321
